FAERS Safety Report 25192989 (Version 2)
Quarter: 2025Q2

REPORT INFORMATION
  Report Type: Spontaneous
  Country: US (occurrence: US)
  Receive Date: 20250414
  Receipt Date: 20250525
  Transmission Date: 20250716
  Serious: No
  Sender: GLAXOSMITHKLINE
  Company Number: US-GSK-US2025039128

PATIENT
  Sex: Female
  Weight: 62.14 kg

DRUGS (2)
  1. ZEJULA [Suspect]
     Active Substance: NIRAPARIB
     Indication: Malignant peritoneal neoplasm
     Dosage: 300 MG, QD
     Route: 048
     Dates: start: 20250327
  2. ZEJULA [Suspect]
     Active Substance: NIRAPARIB
     Dosage: 200 MG, QD

REACTIONS (7)
  - Respiratory tract congestion [Unknown]
  - Nausea [Unknown]
  - Dry mouth [Unknown]
  - Dry eye [Unknown]
  - Nasal dryness [Unknown]
  - Feeding disorder [Unknown]
  - Platelet count decreased [Unknown]
